FAERS Safety Report 23631529 (Version 1)
Quarter: 2024Q1

REPORT INFORMATION
  Report Type: Spontaneous
  Country: NL (occurrence: NL)
  Receive Date: 20240314
  Receipt Date: 20240314
  Transmission Date: 20240410
  Serious: Yes (Death)
  Sender: FDA-Public Use
  Company Number: None

PATIENT
  Age: 41 Year
  Sex: Male
  Weight: 110 kg

DRUGS (1)
  1. CABERGOLINE [Suspect]
     Active Substance: CABERGOLINE
     Indication: Macroprolactinaemia
     Dosage: 0.5 MG, ALTERNATE DAY
     Dates: start: 20161209

REACTIONS (2)
  - Cardiomyopathy [Fatal]
  - Sudden cardiac death [Fatal]
